FAERS Safety Report 7414470-8 (Version None)
Quarter: 2011Q2

REPORT INFORMATION
  Report Type: 
  Country: None (occurrence: None)
  Receive Date: 20110414
  Receipt Date: 20110407
  Transmission Date: 20111010
  Serious: Yes (Death, Hospitalization)
  Sender: FDA-Public Use
  Company Number: FR-JNJFOC-20110400102

PATIENT
  Sex: Female

DRUGS (11)
  1. VOLTAREN [Concomitant]
     Indication: PRODUCT USED FOR UNKNOWN INDICATION
     Dosage: 1-0-1
     Route: 048
     Dates: start: 20091201
  2. FEMARA [Concomitant]
     Indication: PRODUCT USED FOR UNKNOWN INDICATION
     Route: 048
     Dates: start: 20091201
  3. NEXIUM [Concomitant]
     Indication: PRODUCT USED FOR UNKNOWN INDICATION
     Dosage: 1-0-0
     Route: 048
  4. INNOHEP [Concomitant]
     Indication: PRODUCT USED FOR UNKNOWN INDICATION
     Route: 058
  5. HEMIGOXINE NATIVELLE [Suspect]
     Indication: PRODUCT USED FOR UNKNOWN INDICATION
     Dosage: 1-0-0
     Route: 048
     Dates: end: 20100619
  6. DURAGESIC-100 [Suspect]
     Indication: METASTATIC PAIN
     Route: 062
     Dates: start: 20100608
  7. DURAGESIC-100 [Suspect]
     Route: 062
     Dates: start: 20100608
  8. CARDENSIEL [Concomitant]
     Indication: PRODUCT USED FOR UNKNOWN INDICATION
     Dosage: 1-0-0
     Route: 048
  9. DURAGESIC-100 [Suspect]
     Route: 062
     Dates: start: 20100608
  10. DEROXAT [Concomitant]
     Indication: PRODUCT USED FOR UNKNOWN INDICATION
     Dosage: 1-0-0
     Route: 048
  11. LASIX [Concomitant]
     Indication: PRODUCT USED FOR UNKNOWN INDICATION
     Dosage: 1/4-0-0
     Route: 048

REACTIONS (9)
  - PALLOR [None]
  - DYSPNOEA [None]
  - BREAST CANCER [None]
  - SPEECH DISORDER [None]
  - CONFUSIONAL STATE [None]
  - HALLUCINATION [None]
  - HYPERHIDROSIS [None]
  - DELIRIUM [None]
  - ANXIETY [None]
